FAERS Safety Report 13518701 (Version 1)
Quarter: 2017Q2

REPORT INFORMATION
  Report Type: Spontaneous
  Country: CA (occurrence: CA)
  Receive Date: 20170505
  Receipt Date: 20170505
  Transmission Date: 20170830
  Serious: Yes (Hospitalization)
  Sender: FDA-Public Use
  Company Number: CA-TEVA-765226ACC

PATIENT
  Age: 91 Year
  Sex: Male

DRUGS (4)
  1. WARFARIN [Concomitant]
     Active Substance: WARFARIN
  2. AMIODARONE [Concomitant]
     Active Substance: AMIODARONE
  3. WARFARIN [Suspect]
     Active Substance: WARFARIN
     Route: 048
  4. LEVOTHYROXINE. [Concomitant]
     Active Substance: LEVOTHYROXINE

REACTIONS (11)
  - Haemoglobin decreased [Recovered/Resolved]
  - Fatigue [Recovered/Resolved]
  - Pain in extremity [Recovered/Resolved]
  - Ulcer [Recovered/Resolved]
  - Contusion [Recovered/Resolved]
  - International normalised ratio increased [Recovered/Resolved]
  - Tachycardia [Recovered/Resolved]
  - Troponin increased [Recovered/Resolved]
  - Haemorrhage [Recovered/Resolved]
  - Melaena [Recovered/Resolved]
  - Swelling [Recovered/Resolved]
